FAERS Safety Report 6339973-9 (Version None)
Quarter: 2009Q3

REPORT INFORMATION
  Report Type: 
  Country: None (occurrence: None)
  Receive Date: 20090903
  Receipt Date: 20090826
  Transmission Date: 20100115
  Serious: Yes (Hospitalization)
  Sender: FDA-Public Use
  Company Number: DE-WYE-H10765009

PATIENT
  Age: 83 Year
  Sex: Male

DRUGS (11)
  1. PANTOZOL [Suspect]
     Indication: PROPHYLAXIS AGAINST GASTROINTESTINAL ULCER
     Route: 048
     Dates: start: 20040501
  2. TAMSULOSIN HCL [Interacting]
     Indication: BENIGN PROSTATIC HYPERPLASIA
     Dosage: 1 IN 1 D
     Route: 048
  3. DEKRISTOL [Concomitant]
     Indication: SPINAL FRACTURE
     Route: 048
  4. PRIMIDONE [Concomitant]
     Indication: PAIN
     Route: 048
     Dates: start: 20040501
  5. TARGIN [Interacting]
     Indication: PAIN
     Route: 048
     Dates: start: 20080401
  6. PREDNISOLONE [Concomitant]
     Indication: CHRONIC OBSTRUCTIVE PULMONARY DISEASE
     Route: 048
  7. TORASEMIDE [Concomitant]
     Indication: CARDIAC FAILURE
     Dosage: 10 MILLICURIES/DAY
     Route: 048
     Dates: start: 20080401
  8. XIPAMIDE [Concomitant]
     Indication: CARDIAC FAILURE
     Route: 048
     Dates: start: 20040501
  9. ZOLPIDEM [Concomitant]
     Indication: SLEEP DISORDER
     Route: 048
     Dates: start: 20040501
  10. RAMIPRIL [Interacting]
     Indication: HYPERTENSION
     Route: 048
     Dates: start: 20040501, end: 20090406
  11. PIRACETAM [Concomitant]
     Indication: SLEEP DISORDER
     Route: 048
     Dates: start: 20040501

REACTIONS (2)
  - ANGIOEDEMA [None]
  - DRUG INTERACTION [None]
